FAERS Safety Report 8956442 (Version 1)
Quarter: 2012Q4

REPORT INFORMATION
  Report Type: 
  Country: US (occurrence: US)
  Receive Date: 20121210
  Receipt Date: 20121210
  Transmission Date: 20130627
  Serious: Yes (Other)
  Sender: FDA-Public Use
  Company Number: US-PFIZER INC-2012307034

PATIENT
  Age: 51 Year
  Sex: Female
  Weight: 107.48 kg

DRUGS (8)
  1. LYRICA [Suspect]
     Indication: FIBROMYALGIA
     Dosage: 50 mg, 3x/day
     Dates: start: 201210
  2. LYRICA [Suspect]
     Dosage: 100 mg, 3x/day
     Dates: start: 201211
  3. METHOCARBAMOL [Concomitant]
     Indication: PERIPHERAL NEUROPATHY NOS
     Dosage: UNK
  4. DEXILANT [Concomitant]
     Indication: ACID REFLUX (OESOPHAGEAL)
     Dosage: UNK
  5. TRAMADOL HYDROCHLORIDE [Concomitant]
     Indication: PERIPHERAL NEUROPATHY NOS
     Dosage: UNK
     Dates: start: 201210
  6. TRAMADOL HYDROCHLORIDE [Concomitant]
     Indication: NECK INJURY
  7. TRAMADOL HYDROCHLORIDE [Concomitant]
     Indication: BACK INJURY
  8. HYDROCODONE [Concomitant]
     Indication: PAIN
     Dosage: UNK, as needed

REACTIONS (8)
  - Swelling face [Not Recovered/Not Resolved]
  - Swollen tongue [Not Recovered/Not Resolved]
  - Weight increased [Unknown]
  - Oedema peripheral [Not Recovered/Not Resolved]
  - Pain in extremity [Unknown]
  - Tongue disorder [Not Recovered/Not Resolved]
  - Blister [Unknown]
  - Intentional drug misuse [Unknown]
